FAERS Safety Report 16884712 (Version 1)
Quarter: 2019Q4

REPORT INFORMATION
  Report Type: Report from Study
  Country: CL (occurrence: CL)
  Receive Date: 20191004
  Receipt Date: 20191004
  Transmission Date: 20200122
  Serious: No
  Sender: FDA-Public Use
  Company Number: CL-BEH-2019107665

PATIENT
  Age: 28 Year
  Sex: Female

DRUGS (4)
  1. BERINERT [Suspect]
     Active Substance: HUMAN C1-ESTERASE INHIBITOR
     Indication: PROPHYLAXIS
     Dosage: 500 INTERNATIONAL UNIT, TOT
     Route: 042
     Dates: start: 20190826, end: 20190826
  2. BERINERT [Suspect]
     Active Substance: HUMAN C1-ESTERASE INHIBITOR
     Indication: PROPHYLAXIS
     Dosage: 500 INTERNATIONAL UNIT, TOT
     Route: 042
     Dates: start: 20190826, end: 20190826
  3. BERINERT [Suspect]
     Active Substance: HUMAN C1-ESTERASE INHIBITOR
     Indication: HEREDITARY ANGIOEDEMA
     Dosage: 500 INTERNATIONAL UNIT, PRN (CRISIS)
     Route: 042
     Dates: start: 20190110
  4. BERINERT [Suspect]
     Active Substance: HUMAN C1-ESTERASE INHIBITOR
     Indication: HEREDITARY ANGIOEDEMA
     Dosage: 500 INTERNATIONAL UNIT, PRN (CRISIS)
     Route: 042
     Dates: start: 20190110

REACTIONS (2)
  - Toothache [Not Recovered/Not Resolved]
  - Headache [Not Recovered/Not Resolved]
